FAERS Safety Report 17836135 (Version 2)
Quarter: 2020Q2

REPORT INFORMATION
  Report Type: Report from Study
  Country: US (occurrence: US)
  Receive Date: 20200528
  Receipt Date: 20200603
  Transmission Date: 20200714
  Serious: Yes (Hospitalization)
  Sender: FDA-Public Use
  Company Number: US-ACTELION-A-NJ2020-204439

PATIENT
  Age: 1 Year
  Sex: Female
  Weight: 12.7 kg

DRUGS (4)
  1. TRACLEER [Suspect]
     Active Substance: BOSENTAN
     Indication: PULMONARY ARTERIAL HYPERTENSION
     Dosage: 31.25 MG, BID
     Route: 048
  2. SILDENAFIL. [Concomitant]
     Active Substance: SILDENAFIL
  3. UPTRAVI [Suspect]
     Active Substance: SELEXIPAG
     Indication: PULMONARY ARTERIAL HYPERTENSION
     Dosage: 200 MCG, BID
  4. TRACLEER [Suspect]
     Active Substance: BOSENTAN
     Dosage: 8 MG, BID

REACTIONS (5)
  - Product use issue [Unknown]
  - Gastrostomy [Unknown]
  - Retching [Unknown]
  - No adverse event [Unknown]
  - Therapy change [Unknown]

NARRATIVE: CASE EVENT DATE: 20200520
